FAERS Safety Report 14913249 (Version 5)
Quarter: 2018Q3

REPORT INFORMATION
  Report Type: Report from Study
  Country: IL (occurrence: IL)
  Receive Date: 20180518
  Receipt Date: 20180904
  Transmission Date: 20181010
  Serious: Yes (Hospitalization)
  Sender: FDA-Public Use
  Company Number: IL-EISAI MEDICAL RESEARCH-EC-2018-039809

PATIENT
  Age: 80 Year
  Sex: Female
  Weight: 73.5 kg

DRUGS (16)
  1. BISACODYL. [Concomitant]
     Active Substance: BISACODYL
  2. VERAPAMIL [Concomitant]
     Active Substance: VERAPAMIL HYDROCHLORIDE
  3. REOLIN [Concomitant]
  4. PEMBROLIZUMAB. [Suspect]
     Active Substance: PEMBROLIZUMAB
     Indication: METASTATIC RENAL CELL CARCINOMA
     Route: 041
     Dates: start: 20180430, end: 20180430
  5. SIMVASTATIN. [Concomitant]
     Active Substance: SIMVASTATIN
  6. AUGMENTIN [Concomitant]
     Active Substance: AMOXICILLIN\CLAVULANATE POTASSIUM
  7. CALCIUM [Concomitant]
     Active Substance: CALCIUM
  8. IPRATROPIUM BROMIDE. [Concomitant]
     Active Substance: IPRATROPIUM BROMIDE
  9. VABEN [Concomitant]
     Active Substance: OXAZEPAM
  10. CARDIOC [Concomitant]
  11. OMEPRADEX [Concomitant]
     Active Substance: OMEPRAZOLE
  12. BROTIZOLAM [Concomitant]
     Active Substance: BROTIZOLAM
  13. FUSID [Concomitant]
     Active Substance: FUROSEMIDE
  14. ZYPREXA [Concomitant]
     Active Substance: OLANZAPINE
  15. VITAMIN D [Concomitant]
     Active Substance: CHOLECALCIFEROL
  16. LENVATINIB [Suspect]
     Active Substance: LENVATINIB
     Indication: METASTATIC RENAL CELL CARCINOMA
     Route: 048
     Dates: start: 20180430, end: 20180509

REACTIONS (1)
  - Asthenia [Recovered/Resolved]

NARRATIVE: CASE EVENT DATE: 20180509
